FAERS Safety Report 12882695 (Version 3)
Quarter: 2016Q4

REPORT INFORMATION
  Report Type: Spontaneous
  Country: US (occurrence: US)
  Receive Date: 20161025
  Receipt Date: 20161128
  Transmission Date: 20170207
  Serious: Yes (Hospitalization)
  Sender: FDA-Public Use
  Company Number: US-PFIZER INC-2016497442

PATIENT
  Age: 48 Year
  Sex: Female

DRUGS (2)
  1. DILAUDID [Concomitant]
     Active Substance: HYDROMORPHONE HYDROCHLORIDE
     Indication: NEURALGIA
  2. NEURONTIN [Suspect]
     Active Substance: GABAPENTIN
     Indication: NEURALGIA
     Dosage: 100 MG, 2X/DAY

REACTIONS (5)
  - Gastric disorder [Recovering/Resolving]
  - Product use issue [Unknown]
  - Abdominal distension [Recovering/Resolving]
  - Pain [Recovering/Resolving]
  - Neuralgia [Recovering/Resolving]
